FAERS Safety Report 10169779 (Version 3)
Quarter: 2014Q2

REPORT INFORMATION
  Report Type: Report from Study
  Country: US (occurrence: US)
  Receive Date: 20140513
  Receipt Date: 20140521
  Transmission Date: 20141212
  Serious: Yes (Death, Hospitalization)
  Sender: FDA-Public Use
  Company Number: US-ACTELION-A-NJ2014-95255

PATIENT
  Age: 69 Year
  Sex: Female

DRUGS (5)
  1. VENTAVIS [Suspect]
     Indication: PULMONARY ARTERIAL HYPERTENSION
     Dosage: 5 MCG, 5 OR 6 X / DAY
     Route: 055
     Dates: start: 20121011, end: 20140317
  2. LIPITOR [Concomitant]
     Dosage: 10 MG, QD
  3. BONIVA [Concomitant]
     Dosage: 150 MG, Q1MONTH
  4. ASPIRIN [Concomitant]
     Dosage: 81 MG, QD
  5. MULTIVITAMIN [Concomitant]
     Dosage: 1 UNK, QD

REACTIONS (9)
  - Cardio-respiratory arrest [Fatal]
  - Pulmonary hypertension [Recovering/Resolving]
  - Disease progression [Recovering/Resolving]
  - Eye swelling [Unknown]
  - Fatigue [Unknown]
  - Poor quality sleep [Unknown]
  - Abasia [Unknown]
  - Oral herpes [Unknown]
  - Laryngitis [Unknown]
